FAERS Safety Report 23241526 (Version 1)
Quarter: 2023Q4

REPORT INFORMATION
  Report Type: Spontaneous
  Country: CN (occurrence: CN)
  Receive Date: 20231129
  Receipt Date: 20231129
  Transmission Date: 20240110
  Serious: Yes (Hospitalization)
  Sender: FDA-Public Use
  Company Number: CN-Merck Healthcare KGaA-2023489261

PATIENT
  Age: 68 Year
  Sex: Male
  Weight: 54 kg

DRUGS (4)
  1. ERBITUX [Suspect]
     Active Substance: CETUXIMAB
     Indication: Squamous cell carcinoma of head and neck
     Dosage: 385 MG, UNKNOWN
     Route: 041
     Dates: start: 20230819
  2. ERBITUX [Suspect]
     Active Substance: CETUXIMAB
     Dosage: 385 MG, UNKNOWN
     Route: 041
     Dates: start: 20231017
  3. NEDAPLATIN [Suspect]
     Active Substance: NEDAPLATIN
     Indication: Squamous cell carcinoma of head and neck
     Dosage: 100 MG, OTHER (EVERY 3 WEEKS)
     Route: 041
     Dates: start: 20230819
  4. NEDAPLATIN [Suspect]
     Active Substance: NEDAPLATIN
     Dosage: 100 MG, OTHER (EVERY 3 WEEKS)
     Route: 041
     Dates: start: 20231017

REACTIONS (1)
  - Myelosuppression [Recovering/Resolving]

NARRATIVE: CASE EVENT DATE: 20231030
